FAERS Safety Report 22856457 (Version 3)
Quarter: 2024Q4

REPORT INFORMATION
  Report Type: Spontaneous
  Country: US (occurrence: US)
  Receive Date: 20230823
  Receipt Date: 20241226
  Transmission Date: 20250115
  Serious: Yes (Other)
  Sender: PFIZER
  Company Number: US-PFIZER INC-PV202300144210

PATIENT
  Age: 72 Year
  Sex: Female
  Weight: 97.506 kg

DRUGS (2)
  1. XELJANZ [Suspect]
     Active Substance: TOFACITINIB CITRATE
     Dosage: UNK
     Route: 048
  2. XELJANZ [Suspect]
     Active Substance: TOFACITINIB CITRATE
     Dosage: 5 MG, 1X/DAY
     Route: 048

REACTIONS (2)
  - Cerebrovascular accident [Unknown]
  - Pneumonia [Not Recovered/Not Resolved]

NARRATIVE: CASE EVENT DATE: 20230717
